FAERS Safety Report 5383085-8 (Version None)
Quarter: 2007Q3

REPORT INFORMATION
  Report Type: 
  Country: None (occurrence: None)
  Receive Date: 20070710
  Receipt Date: 20070705
  Transmission Date: 20080115
  Serious: Yes (Other)
  Sender: FDA-Public Use
  Company Number: JP-BAYER-200710397BYL

PATIENT
  Age: 39 Year
  Sex: Female
  Weight: 48 kg

DRUGS (15)
  1. AVELOX [Suspect]
     Indication: BRONCHITIS
     Dosage: TOTAL DAILY DOSE: 400 MG  UNIT DOSE: 400 MG
     Route: 048
     Dates: start: 20070507, end: 20070508
  2. BROCIN CODEINE [Concomitant]
     Indication: BRONCHITIS
     Dosage: TOTAL DAILY DOSE: 4.5 ML
     Route: 048
     Dates: start: 20070507, end: 20070512
  3. MUCODYNE [Concomitant]
     Indication: BRONCHITIS
     Dosage: TOTAL DAILY DOSE: 1500 MG  UNIT DOSE: 250 MG
     Route: 048
     Dates: start: 20070428, end: 20070527
  4. MUCOSTA [Concomitant]
     Indication: GASTRITIS
     Dosage: TOTAL DAILY DOSE: 300 MG  UNIT DOSE: 100 MG
     Route: 048
     Dates: start: 20070428
  5. ZITHROMAC [Concomitant]
     Indication: BRONCHITIS
     Dosage: TOTAL DAILY DOSE: 500 MG  UNIT DOSE: 250 MG
     Route: 048
     Dates: start: 20070512, end: 20070514
  6. ZITHROMAC [Concomitant]
     Dosage: TOTAL DAILY DOSE: 500 MG  UNIT DOSE: 250 MG
     Route: 048
     Dates: start: 20070519, end: 20070521
  7. CLARITHROMYCIN [Concomitant]
     Indication: BRONCHITIS
     Route: 048
     Dates: start: 20070428, end: 20070501
  8. CLARITHROMYCIN [Concomitant]
     Dosage: TOTAL DAILY DOSE: 200 MG  UNIT DOSE: 200 MG
     Route: 048
     Dates: start: 20070527, end: 20070602
  9. DASEN [Concomitant]
     Indication: BRONCHITIS
     Route: 048
     Dates: start: 20070501, end: 20070506
  10. DASEN [Concomitant]
     Dosage: TOTAL DAILY DOSE: 20 MG  UNIT DOSE: 10 MG
     Route: 048
     Dates: start: 20070623
  11. TRANSAMIN [Concomitant]
     Route: 048
     Dates: start: 20070428, end: 20070502
  12. VOLTAREN [Concomitant]
     Route: 048
     Dates: start: 20070428, end: 20070507
  13. ASVERIN [Concomitant]
     Route: 048
     Dates: start: 20070501, end: 20070506
  14. ASVERIN [Concomitant]
     Route: 048
     Dates: start: 20070519, end: 20070622
  15. ASVERIN [Concomitant]
     Route: 048
     Dates: start: 20070623

REACTIONS (3)
  - DIZZINESS [None]
  - NAUSEA [None]
  - PNEUMONIA [None]
